FAERS Safety Report 24091380 (Version 2)
Quarter: 2024Q3

REPORT INFORMATION
  Report Type: Spontaneous
  Country: CA (occurrence: CA)
  Receive Date: 20240715
  Receipt Date: 20240802
  Transmission Date: 20241017
  Serious: Yes (Other)
  Sender: TEVA
  Company Number: CA-TEVA-VS-3217685

PATIENT
  Age: 44 Year
  Sex: Female

DRUGS (9)
  1. PREDNISONE [Suspect]
     Active Substance: PREDNISONE
     Indication: Occupational asthma
     Dosage: MAINTENANCE
     Route: 065
  2. PREDNISONE [Suspect]
     Active Substance: PREDNISONE
     Indication: Occupational asthma
     Route: 065
  3. BECLOMETHASONE [Concomitant]
     Active Substance: BECLOMETHASONE
     Indication: Occupational asthma
     Route: 065
  4. BECLOMETHASONE [Concomitant]
     Active Substance: BECLOMETHASONE
     Indication: Occupational asthma
     Dosage: INITIAL DOSE NOT STATED
     Route: 065
  5. METAMUCIL [Suspect]
     Active Substance: PLANTAGO SEED
     Indication: Product used for unknown indication
     Dosage: SINGLE HIGH-DOSE EXPOSURE
     Route: 065
  6. THEOPHYLLINE [Concomitant]
     Active Substance: THEOPHYLLINE
     Indication: Occupational asthma
     Route: 065
  7. FENOTEROL [Concomitant]
     Active Substance: FENOTEROL
     Indication: Occupational asthma
     Dosage: AS NEEDED
     Route: 065
  8. FENOTEROL [Concomitant]
     Active Substance: FENOTEROL
     Indication: Occupational asthma
     Dosage: INITIAL DOSE NOT STATED
     Route: 065
  9. BUDESONIDE\FORMOTEROL [Concomitant]
     Active Substance: BUDESONIDE\FORMOTEROL
     Indication: Occupational asthma

REACTIONS (6)
  - Occupational asthma [Unknown]
  - Rib fracture [Unknown]
  - Occupational exposure to product [Unknown]
  - Polymyalgia rheumatica [Unknown]
  - Arthralgia [Unknown]
  - Withdrawal syndrome [Unknown]
